FAERS Safety Report 8155605-1 (Version None)
Quarter: 2012Q1

REPORT INFORMATION
  Report Type: 
  Country: None (occurrence: None)
  Receive Date: 20120222
  Receipt Date: 20120217
  Transmission Date: 20120608
  Serious: No
  Sender: FDA-Public Use
  Company Number: US-PFIZER INC-2012043538

PATIENT
  Sex: Female

DRUGS (2)
  1. XANAX [Suspect]
     Dosage: UNK
     Dates: start: 20050101
  2. FLUOXETINE HYDROCHLORIDE [Interacting]
     Dosage: UNK

REACTIONS (2)
  - DRUG INTERACTION [None]
  - DYSPHORIA [None]
